FAERS Safety Report 9940420 (Version 1)
Quarter: 2014Q1

REPORT INFORMATION
  Report Type: Spontaneous
  Country: US (occurrence: US)
  Receive Date: 20140303
  Receipt Date: 20140303
  Transmission Date: 20141002
  Serious: Yes (Death)
  Sender: FDA-Public Use
  Company Number: US-BANPHARM-20142210

PATIENT
  Age: 20 Year
  Sex: Male

DRUGS (8)
  1. DIPHENHYDRAMINE UNKNOWN PRODUCT [Suspect]
     Route: 048
  2. METHADONE [Suspect]
  3. OXYCODONE [Suspect]
  4. MORPHINE [Suspect]
  5. CLONAZEPAM [Suspect]
  6. COCAINE [Suspect]
  7. CITALOPRAM [Suspect]
  8. ACETAMINOPHEN [Concomitant]

REACTIONS (2)
  - Death [Fatal]
  - Drug abuse [Fatal]
